FAERS Safety Report 9795434 (Version 2)
Quarter: 2014Q2

REPORT INFORMATION
  Report Type: Spontaneous
  Country: JP (occurrence: JP)
  Receive Date: 20140103
  Receipt Date: 20140408
  Transmission Date: 20141212
  Serious: Yes (Disabling)
  Sender: FDA-Public Use
  Company Number: JP-JNJFOC-20131217609

PATIENT
  Age: 82 Year
  Sex: Female
  Weight: 48.07 kg

DRUGS (8)
  1. XARELTO [Suspect]
     Indication: CEREBROVASCULAR ACCIDENT PROPHYLAXIS
     Route: 048
     Dates: start: 20131119, end: 20131212
  2. XARELTO [Suspect]
     Indication: ATRIAL FIBRILLATION
     Route: 048
     Dates: start: 20131119, end: 20131212
  3. ALDACTONE A [Concomitant]
     Route: 048
     Dates: start: 20111222
  4. DEPAKENE [Concomitant]
     Route: 048
     Dates: start: 20020202
  5. BIOFERMIN [Concomitant]
     Route: 048
     Dates: start: 20111222
  6. METHAPHYLLIN [Concomitant]
     Route: 048
     Dates: start: 201106
  7. CERCINE [Concomitant]
     Route: 048
     Dates: start: 201106
  8. FLUITRAN [Concomitant]
     Route: 048
     Dates: start: 201106

REACTIONS (1)
  - Tubulointerstitial nephritis [Recovering/Resolving]
